FAERS Safety Report 6213765-3 (Version None)
Quarter: 2009Q2

REPORT INFORMATION
  Report Type: 
  Country: None (occurrence: None)
  Receive Date: 20090602
  Receipt Date: 20090519
  Transmission Date: 20091009
  Serious: Yes (Hospitalization, Other)
  Sender: FDA-Public Use
  Company Number: 236348K06USA

PATIENT
  Age: 50 Year
  Sex: Female
  Weight: 100 kg

DRUGS (13)
  1. REBIF [Suspect]
     Indication: MULTIPLE SCLEROSIS
     Dosage: 44 MCG, 3 IN 1 WEEKS, SUBCUTANEOUS
     Route: 058
     Dates: start: 20051020
  2. HYZAAR 100-25 (HYZAAR) [Concomitant]
  3. XALATAN [Concomitant]
  4. ALPHAGAN [Concomitant]
  5. PREVACID [Concomitant]
  6. SANCTURA (ALL OTHER THERAPEUTIC PRODUCTS) [Concomitant]
  7. ZOLOFT [Concomitant]
  8. CYMBALTA [Concomitant]
  9. TYLENOL (COTYLENOL) [Concomitant]
  10. NASONEX [Concomitant]
  11. XYZAL [Concomitant]
  12. TOPROL-XL [Concomitant]
  13. VITAMIN D [Concomitant]

REACTIONS (4)
  - DYSPHONIA [None]
  - GOITRE [None]
  - HYPERVENTILATION [None]
  - VOCAL CORD DISORDER [None]
